FAERS Safety Report 8941335 (Version 2)
Quarter: 2012Q4

REPORT INFORMATION
  Report Type: 
  Country: JP (occurrence: JP)
  Receive Date: 20121203
  Receipt Date: 20121228
  Transmission Date: 20130627
  Serious: Yes (Hospitalization)
  Sender: FDA-Public Use
  Company Number: JP-ELI_LILLY_AND_COMPANY-JP201209004690

PATIENT
  Age: 0 Year
  Weight: 2.97 kg

DRUGS (4)
  1. CYMBALTA [Suspect]
     Dosage: 20 mg, qd
     Route: 064
     Dates: end: 20120908
  2. CYMBALTA [Suspect]
     Dosage: 20 mg, qd
     Route: 064
     Dates: end: 20120908
  3. CYMBALTA [Suspect]
     Dosage: 20 mg, qd
     Route: 063
     Dates: start: 20120911
  4. CYMBALTA [Suspect]
     Dosage: 20 mg, qd
     Route: 063
     Dates: start: 20120911

REACTIONS (4)
  - Apnoea [Not Recovered/Not Resolved]
  - Withdrawal syndrome [Recovered/Resolved]
  - Foetal exposure during pregnancy [Recovered/Resolved]
  - Exposure during breast feeding [Not Recovered/Not Resolved]
